FAERS Safety Report 16414587 (Version 1)
Quarter: 2019Q2

REPORT INFORMATION
  Report Type: Spontaneous
  Country: SE (occurrence: SE)
  Receive Date: 20190611
  Receipt Date: 20190611
  Transmission Date: 20190711
  Serious: Yes (Other)
  Sender: FDA-Public Use
  Company Number: SE-PFIZER INC-2019246262

PATIENT
  Age: 59 Year
  Sex: Male

DRUGS (5)
  1. VENLAFAXIN MYLAN [Concomitant]
     Dosage: 225 MG, UNK
  2. MIRTAZAPIN [Concomitant]
     Active Substance: MIRTAZAPINE
     Dosage: 30 MG, UNK
  3. METOPROLOL ORION [Concomitant]
     Active Substance: METOPROLOL
     Dosage: 25 MG, UNK
  4. XELJANZ [Suspect]
     Active Substance: TOFACITINIB CITRATE
     Indication: PSORIATIC ARTHROPATHY
     Dosage: 10 MG, UNK
     Dates: start: 20190129
  5. METHOTREXATE. [Concomitant]
     Active Substance: METHOTREXATE
     Dosage: 27.5 MG, UNK
     Dates: start: 20140528

REACTIONS (1)
  - Thrombocytopenia [Unknown]

NARRATIVE: CASE EVENT DATE: 20190515
